FAERS Safety Report 17418926 (Version 1)
Quarter: 2020Q1

REPORT INFORMATION
  Report Type: Spontaneous
  Country: US (occurrence: US)
  Receive Date: 20200211
  Receipt Date: 20200211
  Transmission Date: 20200409
  Serious: No
  Sender: FDA-Public Use
  Company Number: US-BRECKENRIDGE PHARMACEUTICAL, INC.-2080122

PATIENT
  Sex: Male

DRUGS (11)
  1. METOPROLOL. [Concomitant]
     Active Substance: METOPROLOL
  2. ALLOPURINOL. [Concomitant]
     Active Substance: ALLOPURINOL
  3. DULOXETINE. [Suspect]
     Active Substance: DULOXETINE
     Indication: PAIN
     Route: 048
     Dates: start: 20200122, end: 20200123
  4. LIPITOR [Concomitant]
     Active Substance: ATORVASTATIN CALCIUM
  5. CLOPIDOGREL [Concomitant]
     Active Substance: CLOPIDOGREL BISULFATE
  6. LOSARTAN. [Concomitant]
     Active Substance: LOSARTAN
  7. PRILOSEC [Concomitant]
     Active Substance: OMEPRAZOLE MAGNESIUM
  8. MELOXICAM. [Concomitant]
     Active Substance: MELOXICAM
  9. IMDUR [Concomitant]
     Active Substance: ISOSORBIDE MONONITRATE
  10. ASPIRIN. [Concomitant]
     Active Substance: ASPIRIN
  11. FUROSEMIDE. [Concomitant]
     Active Substance: FUROSEMIDE

REACTIONS (4)
  - Insomnia [None]
  - Disorientation [None]
  - Mood swings [None]
  - Asthenia [None]
